FAERS Safety Report 24412643 (Version 2)
Quarter: 2024Q4

REPORT INFORMATION
  Report Type: Report from Study
  Country: US (occurrence: US)
  Receive Date: 20241008
  Receipt Date: 20241023
  Transmission Date: 20250115
  Serious: Yes (Hospitalization)
  Sender: UCB
  Company Number: US-UCBSA-2024050647

PATIENT
  Sex: Male

DRUGS (2)
  1. FINTEPLA [Suspect]
     Active Substance: FENFLURAMINE
     Indication: Severe myoclonic epilepsy of infancy
     Dosage: 2.2 MILLIGRAM PER MILLILITRE
  2. FINTEPLA [Suspect]
     Active Substance: FENFLURAMINE
     Dosage: 5.13 MILLILITER, 2X/DAY (BID)

REACTIONS (2)
  - Failure to thrive [Not Recovered/Not Resolved]
  - Hospitalisation [Not Recovered/Not Resolved]
